FAERS Safety Report 7368727-X (Version None)
Quarter: 2011Q1

REPORT INFORMATION
  Report Type: 
  Country: None (occurrence: None)
  Receive Date: 20110323
  Receipt Date: 20100909
  Transmission Date: 20110831
  Serious: Yes (Hospitalization, Other)
  Sender: FDA-Public Use
  Company Number: US-BAYER-201010685NA

PATIENT
  Sex: Female
  Weight: 118.64 kg

DRUGS (9)
  1. PERCODAN-DEMI [Concomitant]
     Indication: PAIN
  2. METFORMIN [Concomitant]
     Dosage: 1000 MG (DAILY DOSE), BID,
     Route: 048
     Dates: start: 20060101
  3. JUICE PLUS [Concomitant]
     Dates: start: 20070101, end: 20080101
  4. SYNTHROID [Concomitant]
     Dates: start: 20080101
  5. PHENTERMINE [Concomitant]
     Dosage: 37.5 MG, UNK
     Dates: start: 20060721, end: 20060901
  6. NEXIUM [Concomitant]
     Dosage: 40 MG, QD
     Route: 048
  7. OXYCODONE AND ASPIRIN [Concomitant]
  8. YASMIN [Suspect]
     Indication: PREMENSTRUAL SYNDROME
     Dosage: UNK
     Route: 048
     Dates: start: 20060201, end: 20070501
  9. YASMIN [Suspect]
     Indication: CONTRACEPTION

REACTIONS (11)
  - CHOLELITHIASIS [None]
  - ABDOMINAL PAIN [None]
  - ERUCTATION [None]
  - CHOLECYSTITIS CHRONIC [None]
  - CHEST PAIN [None]
  - MUSCULOSKELETAL PAIN [None]
  - ABDOMINAL PAIN UPPER [None]
  - CHOLESTEROSIS [None]
  - PLEURISY [None]
  - ABNORMAL LOSS OF WEIGHT [None]
  - NAUSEA [None]
